FAERS Safety Report 11262162 (Version 1)
Quarter: 2015Q3

REPORT INFORMATION
  Report Type: Spontaneous
  Country: US (occurrence: US)
  Receive Date: 20150710
  Receipt Date: 20150710
  Transmission Date: 20151125
  Serious: Yes (Death, Other)
  Sender: FDA-Public Use
  Company Number: US-GLAXOSMITHKLINE-US2015GSK099430

PATIENT
  Sex: Female

DRUGS (1)
  1. TYKERB [Suspect]
     Active Substance: LAPATINIB DITOSYLATE
     Indication: BREAST CANCER
     Dosage: 250 UG, U
     Route: 065
     Dates: start: 201412, end: 201506

REACTIONS (3)
  - Metastases to central nervous system [Fatal]
  - Hospice care [Unknown]
  - Breast cancer metastatic [Fatal]
